FAERS Safety Report 8947110 (Version 1)
Quarter: 2012Q4

REPORT INFORMATION
  Report Type: 
  Country: US (occurrence: US)
  Receive Date: 20121205
  Receipt Date: 20121205
  Transmission Date: 20130627
  Serious: No
  Sender: FDA-Public Use
  Company Number: US-PFIZER INC-2012301848

PATIENT
  Age: 67 Year
  Sex: Male

DRUGS (1)
  1. INLYTA [Suspect]
     Indication: MALIGNANT NEOPLASM OF KIDNEY, EXCEPT PELVIS
     Dosage: 5 mg, 2 tablets twice a day
     Route: 048
     Dates: start: 20120727

REACTIONS (2)
  - Myalgia [Unknown]
  - Limb discomfort [Unknown]
